FAERS Safety Report 25277073 (Version 1)
Quarter: 2025Q2

REPORT INFORMATION
  Report Type: Spontaneous
  Country: CA (occurrence: CA)
  Receive Date: 20250507
  Receipt Date: 20250507
  Transmission Date: 20250717
  Serious: Yes (Other)
  Sender: APOTEX
  Company Number: CA-APOTEX-2025AP006544

PATIENT
  Age: 77 Year
  Sex: Male

DRUGS (2)
  1. PREGABALIN [Suspect]
     Active Substance: PREGABALIN
     Indication: Neurological symptom
     Dosage: 150 MILLIGRAM, QD
     Route: 065
  2. PREGABALIN [Suspect]
     Active Substance: PREGABALIN
     Dosage: 100 MILLIGRAM, QD
     Route: 065

REACTIONS (2)
  - Facial paralysis [Unknown]
  - Parkinsonism [Unknown]
